FAERS Safety Report 20954694 (Version 1)
Quarter: 2022Q2

REPORT INFORMATION
  Report Type: Spontaneous
  Country: US (occurrence: US)
  Receive Date: 20220614
  Receipt Date: 20220614
  Transmission Date: 20220721
  Serious: No
  Sender: FDA-Public Use
  Company Number: US-TEVA-2022-US-2039689

PATIENT
  Age: 74 Year
  Sex: Female

DRUGS (3)
  1. CLONIDINE HYDROCHLORIDE [Suspect]
     Active Substance: CLONIDINE HYDROCHLORIDE
     Indication: Malignant hypertension
     Dosage: 30 TABLETS/MONTH (1 TABLET A DAY OR TO BE USED AS NEEDED)
     Dates: start: 20220111
  2. CLONIDINE [Suspect]
     Active Substance: CLONIDINE
     Dosage: FOR 2 MONTHS
  3. CLONIDINE [Suspect]
     Active Substance: CLONIDINE

REACTIONS (3)
  - Drug ineffective [Unknown]
  - Blood pressure decreased [Unknown]
  - Blood pressure increased [Recovered/Resolved]

NARRATIVE: CASE EVENT DATE: 20220101
